FAERS Safety Report 6823212-6 (Version None)
Quarter: 2010Q3

REPORT INFORMATION
  Report Type: 
  Country: None (occurrence: None)
  Receive Date: 20100708
  Receipt Date: 20100630
  Transmission Date: 20110219
  Serious: Yes (Death, Life-Threatening, Hospitalization)
  Sender: FDA-Public Use
  Company Number: DE-ELI_LILLY_AND_COMPANY-DE201007000567

PATIENT
  Sex: Male
  Weight: 52 kg

DRUGS (19)
  1. GEMCITABINE HYDROCHLORIDE [Suspect]
     Indication: NON-SMALL CELL LUNG CANCER
     Dosage: 2000 MG, 2 IN 3 WEEKS
     Route: 042
     Dates: start: 20100617
  2. CISPLATIN [Suspect]
     Indication: NON-SMALL CELL LUNG CANCER
     Dosage: 120 MG, 1 IN 3 WEEKS
     Route: 042
     Dates: start: 20100617
  3. PSORCUTAN [Concomitant]
     Indication: PSORIATIC ARTHROPATHY
     Dates: start: 19760101
  4. ATARAX [Concomitant]
     Indication: PRURITUS
     Dates: start: 19760101
  5. DICLOFENAC SODIUM [Concomitant]
     Indication: PAIN
     Dates: start: 19960101
  6. TRAMADOL [Concomitant]
     Indication: PAIN
     Dates: start: 20100616
  7. METAMIZOLE [Concomitant]
     Indication: PAIN
     Route: 048
     Dates: start: 20100511
  8. METAMIZOLE [Concomitant]
     Route: 042
     Dates: start: 20100622
  9. AMPHOTERICIN B [Concomitant]
     Indication: STOMATITIS
     Dates: start: 20100511
  10. MORPHIN HCL [Concomitant]
     Indication: PAIN
     Dates: start: 20100618
  11. AREDIA [Concomitant]
     Indication: PSORIATIC ARTHROPATHY
     Dates: start: 20100618, end: 20100618
  12. MACROGOL [Concomitant]
     Indication: CONSTIPATION
     Dates: start: 20100620, end: 20100627
  13. POVIDONE IODINE [Concomitant]
     Indication: ERYTHEMA MULTIFORME
     Dates: start: 20100626, end: 20100629
  14. STRUCTOKABIVEN /05981101/ [Concomitant]
     Indication: PARENTERAL NUTRITION
     Dates: start: 20100628, end: 20100629
  15. METHOTREXATE [Concomitant]
     Indication: PSORIATIC ARTHROPATHY
     Dates: start: 20100622
  16. NALOXONE [Concomitant]
     Indication: PAIN
     Dates: start: 20100620, end: 20100620
  17. LOPERAMIDE [Concomitant]
     Indication: DIARRHOEA
     Dates: start: 20100627, end: 20100628
  18. PANTOPRAZOLE [Concomitant]
     Indication: PAIN
     Route: 042
     Dates: start: 20100629, end: 20100629
  19. VITAMIN A [Concomitant]
     Dates: start: 20100628, end: 20100629

REACTIONS (10)
  - ACTIVITIES OF DAILY LIVING IMPAIRED [None]
  - CONSTIPATION [None]
  - DIARRHOEA [None]
  - DIZZINESS [None]
  - ERYTHEMA MULTIFORME [None]
  - GAIT DISTURBANCE [None]
  - GENERAL PHYSICAL HEALTH DETERIORATION [None]
  - NAUSEA [None]
  - NEUTROPENIC SEPSIS [None]
  - VOMITING [None]
